FAERS Safety Report 10012370 (Version 3)
Quarter: 2014Q2

REPORT INFORMATION
  Report Type: Spontaneous
  Country: US (occurrence: US)
  Receive Date: 20140312
  Receipt Date: 20140410
  Transmission Date: 20141212
  Serious: No
  Sender: FDA-Public Use
  Company Number: US-PFIZER INC-2014070661

PATIENT
  Age: 82 Year
  Sex: Male

DRUGS (5)
  1. SUTENT [Suspect]
     Indication: NEOPLASM MALIGNANT
     Dosage: 50 MG, 1X/DAY
     Route: 048
     Dates: start: 20130508
  2. LEVOTHYROXINE [Concomitant]
     Dosage: 100 UG, UNK
  3. LORAZEPAM [Concomitant]
     Dosage: 10 MG, UNK
  4. TRAMADOL [Concomitant]
     Dosage: 50 MG, UNK
  5. ONDANSETRON [Concomitant]
     Dosage: 8 MG, UNK

REACTIONS (2)
  - Diarrhoea [Unknown]
  - Decreased appetite [Unknown]
